FAERS Safety Report 6099861-2 (Version None)
Quarter: 2009Q1

REPORT INFORMATION
  Report Type: 
  Country: None (occurrence: None)
  Receive Date: 20090303
  Receipt Date: 20090226
  Transmission Date: 20090719
  Serious: Yes (Death, Hospitalization)
  Sender: FDA-Public Use
  Company Number: PHHY2008GB26683

PATIENT
  Sex: Male

DRUGS (2)
  1. EXJADE [Suspect]
     Indication: MYELODYSPLASTIC SYNDROME
     Dosage: UNK
     Route: 048
  2. EXJADE [Suspect]
     Indication: CHELATION THERAPY

REACTIONS (6)
  - BLOOD CREATININE INCREASED [None]
  - CONFUSIONAL STATE [None]
  - DEHYDRATION [None]
  - RENAL FAILURE [None]
  - URINARY TRACT INFECTION [None]
  - URINE OUTPUT DECREASED [None]
